FAERS Safety Report 4511195-3 (Version None)
Quarter: 2004Q4

REPORT INFORMATION
  Report Type: 
  Country: None (occurrence: None)
  Receive Date: 20041122
  Receipt Date: 20041122
  Transmission Date: 20050328
  Serious: Yes (Disabling, Other)
  Sender: FDA-Public Use
  Company Number: None

PATIENT
  Age: 28 Year
  Sex: Female
  Weight: 65.7716 kg

DRUGS (1)
  1. ORTHO EVRA [Suspect]
     Indication: CONTRACEPTION
     Dosage: 3 WEEKS ON TRANSDERMAL
     Route: 062
     Dates: start: 20030903, end: 20031215

REACTIONS (9)
  - ABASIA [None]
  - ARTHRALGIA [None]
  - DRUG INEFFECTIVE [None]
  - FATIGUE [None]
  - IMPAIRED WORK ABILITY [None]
  - INFLAMMATION [None]
  - JOINT EFFUSION [None]
  - JOINT RANGE OF MOTION DECREASED [None]
  - PAIN [None]
